FAERS Safety Report 4311054-5 (Version None)
Quarter: 2004Q1

REPORT INFORMATION
  Report Type: 
  Country: None (occurrence: None)
  Receive Date: 20040302
  Receipt Date: 20040223
  Transmission Date: 20041129
  Serious: Yes (Hospitalization)
  Sender: FDA-Public Use
  Company Number: US-JNJFOC-20040205897

PATIENT
  Age: 78 Year
  Sex: Female

DRUGS (20)
  1. INFLIXIMAB (INFLIXIMAB, RECOMBINANT) LYOPHILIZED POWDER [Suspect]
     Indication: RHEUMATOID ARTHRITIS
     Dosage: INTRAVENOUS
     Route: 042
     Dates: start: 20010718, end: 20010801
  2. METHOTREXATE [Concomitant]
  3. MEDROL [Concomitant]
  4. PREVACID [Concomitant]
  5. NORVASC [Concomitant]
  6. CELEBREX [Concomitant]
  7. PREMARIN [Concomitant]
  8. DARVOCET (PROPACET) [Concomitant]
  9. FOLIC ACID [Concomitant]
  10. TYLENOL [Concomitant]
  11. LANOXIN [Concomitant]
  12. TAMBOCOR (FLEICAINIDE ACETATE) [Concomitant]
  13. VITAMIN C (ASCORBIC ACID) [Concomitant]
  14. CALCIUM (CALCIUM) [Concomitant]
  15. MULTIVITAMIN (MULTIVITAMINS) [Concomitant]
  16. VITAMIN E [Concomitant]
  17. B COMPLEX ELX [Concomitant]
  18. MAALOX (MAALOX) [Concomitant]
  19. TYLENOL SINUS (TYLENOL SINUS MEDICATION) [Concomitant]
  20. DIGEL (ALL OTHER THERAPEUTIC PRODUCTS) [Concomitant]

REACTIONS (3)
  - ESCHERICHIA SEPSIS [None]
  - HYPONATRAEMIA [None]
  - URINARY TRACT INFECTION [None]
